FAERS Safety Report 4832731-3 (Version None)
Quarter: 2005Q4

REPORT INFORMATION
  Report Type: 
  Country: None (occurrence: None)
  Receive Date: 20051117
  Receipt Date: 20051117
  Transmission Date: 20060501
  Serious: Yes (Hospitalization)
  Sender: FDA-Public Use
  Company Number: None

PATIENT
  Sex: Female

DRUGS (1)
  1. PIPERACILLIN/TAZOBACTAM  4.5 GRAMS [Suspect]
     Indication: LUNG ABSCESS
     Dosage: 4.5 GRAMS Q8H   IV DRIP
     Route: 041
     Dates: start: 20051023, end: 20051025

REACTIONS (3)
  - RASH [None]
  - RENAL DISORDER [None]
  - RENAL TUBULAR DISORDER [None]
